FAERS Safety Report 9334544 (Version 1)
Quarter: 2013Q2

REPORT INFORMATION
  Report Type: Spontaneous
  Country: US (occurrence: US)
  Receive Date: 20130606
  Receipt Date: 20130606
  Transmission Date: 20140414
  Serious: No
  Sender: FDA-Public Use
  Company Number: US-AMGEN-USASP2013026205

PATIENT
  Age: 69 Year
  Sex: Female
  Weight: 67.57 kg

DRUGS (6)
  1. PROLIA [Suspect]
     Indication: OSTEOPOROSIS POSTMENOPAUSAL
     Dosage: 60 MG, Q6MO
     Dates: start: 20120510
  2. LISINOPRIL [Concomitant]
  3. LIPITOR [Concomitant]
  4. COQ10                              /00517201/ [Concomitant]
  5. ZYRTEC [Concomitant]
  6. CRANBERRY                          /01512301/ [Concomitant]

REACTIONS (3)
  - Local swelling [Recovered/Resolved]
  - Dry skin [Recovered/Resolved]
  - Pruritus [Recovered/Resolved]
